FAERS Safety Report 7192001-8 (Version None)
Quarter: 2010Q4

REPORT INFORMATION
  Report Type: 
  Country: None (occurrence: None)
  Receive Date: 20101223
  Receipt Date: 20101217
  Transmission Date: 20110411
  Serious: Yes (Hospitalization, Other)
  Sender: FDA-Public Use
  Company Number: PHHO2010BR19248

PATIENT
  Sex: Male
  Weight: 64 kg

DRUGS (4)
  1. MYFORTIC [Suspect]
     Indication: RENAL TRANSPLANT
     Dosage: 1080 MG PER DAY
     Route: 048
     Dates: start: 20100701, end: 20100920
  2. TACROLIMUS [Suspect]
     Indication: RENAL TRANSPLANT
     Dosage: 14 MG/DAY
     Route: 048
     Dates: start: 20100701
  3. PREDNISONE [Suspect]
     Indication: RENAL TRANSPLANT
     Dosage: 7.5 MG PER DAY
     Route: 048
     Dates: start: 20100701
  4. EPOGEN [Concomitant]

REACTIONS (4)
  - HYDRONEPHROSIS [None]
  - LUNG INFILTRATION [None]
  - PULMONARY TUBERCULOSIS [None]
  - PYREXIA [None]
